FAERS Safety Report 4652517-2 (Version None)
Quarter: 2005Q2

REPORT INFORMATION
  Report Type: 
  Country: None (occurrence: None)
  Receive Date: 20050502
  Receipt Date: 20050421
  Transmission Date: 20051028
  Serious: Yes (Other)
  Sender: FDA-Public Use
  Company Number: 2005-04-1692

PATIENT
  Age: 50 Year
  Sex: Female

DRUGS (2)
  1. INTRON A [Suspect]
     Indication: HEPATITIS B
     Dosage: 3 MIU TIW INTRAMUSCULAR
     Route: 030
     Dates: start: 20030610
  2. ZEFFIX (LAMIVUDINE) [Concomitant]

REACTIONS (6)
  - BUTTOCK PAIN [None]
  - INJECTION SITE ERYTHEMA [None]
  - INJECTION SITE INDURATION [None]
  - SCAB [None]
  - SKIN ULCER [None]
  - TENDERNESS [None]
